FAERS Safety Report 16495162 (Version 3)
Quarter: 2021Q1

REPORT INFORMATION
  Report Type: Report from Study
  Country: NL (occurrence: NL)
  Receive Date: 20190628
  Receipt Date: 20210302
  Transmission Date: 20210419
  Serious: Yes (Other)
  Sender: FDA-Public Use
  Company Number: NL-AMGEN-NLDSL2019068507

PATIENT
  Age: 42 Year
  Sex: Female

DRUGS (13)
  1. DIAZEPAM. [Concomitant]
     Active Substance: DIAZEPAM
     Dosage: 5 MILLIGRAM, QD
  2. GOSERELINE [Concomitant]
     Active Substance: GOSERELIN
     Dosage: 10.8 MILLIGRAM 1X PER 3M 1INJ, QD
  3. XGEVA [Suspect]
     Active Substance: DENOSUMAB
     Indication: PROPHYLAXIS
     Dosage: 120 MILLIGRAM (120MG/1,7ML),  Q4WK
     Route: 058
     Dates: start: 20190328
  4. METOCLOPRAMIDE. [Concomitant]
     Active Substance: METOCLOPRAMIDE
     Dosage: 10 MILLIGRAM, 3D1T AS NECESSARY
  5. CALCIUM CARBONATE W/COLECALCIFEROL [Concomitant]
     Active Substance: CALCIUM CARBONATE\CHOLECALCIFEROL
     Dosage: 1.25 GRAM/ 400 IE (500MG CA), QD
  6. OXYCODON [Concomitant]
     Active Substance: OXYCODONE
     Dosage: 10 MILLIGRAM,2D1T
  7. XGEVA [Suspect]
     Active Substance: DENOSUMAB
     Dosage: 120 MILLIGRAM (120MG/1,7ML),  Q4WK
     Route: 058
     Dates: start: 20210125
  8. XGEVA [Suspect]
     Active Substance: DENOSUMAB
     Dosage: 120 MILLIGRAM (120MG/1,7ML),  Q4WK
     Route: 058
  9. ANASTROZOL [Concomitant]
     Active Substance: ANASTROZOLE
     Dosage: 1 MILLIGRAM, QD
  10. MELOXICAM. [Concomitant]
     Active Substance: MELOXICAM
     Dosage: 7.5 MILLIGRAM, 2D1T
  11. NADROPARINE [Concomitant]
     Active Substance: NADROPARIN
     Dosage: WWSP 5700IE=0,6ML (9500IE/ML) 2XD 1 INJ
  12. PANTOPRAZOLE [Concomitant]
     Active Substance: PANTOPRAZOLE
     Dosage: 40 MILLIGRAM, QD
  13. RIVAROXABAN [Concomitant]
     Active Substance: RIVAROXABAN
     Dosage: 20 MILLIGRAM, QD

REACTIONS (2)
  - Metastasis [Unknown]
  - Nausea [Not Recovered/Not Resolved]

NARRATIVE: CASE EVENT DATE: 20190426
